FAERS Safety Report 13781279 (Version 1)
Quarter: 2017Q3

REPORT INFORMATION
  Report Type: Spontaneous
  Country: US (occurrence: US)
  Receive Date: 20170721
  Receipt Date: 20170721
  Transmission Date: 20171127
  Serious: Yes (Life-Threatening, Hospitalization)
  Sender: FDA-Public Use
  Company Number: None

PATIENT
  Age: 83 Year
  Sex: Male
  Weight: 111.36 kg

DRUGS (2)
  1. WARFARIN [Suspect]
     Active Substance: WARFARIN
     Indication: ATRIAL FIBRILLATION
     Route: 048
     Dates: start: 20170609, end: 20170717
  2. WARFARIN [Suspect]
     Active Substance: WARFARIN
     Indication: MITRAL VALVE INCOMPETENCE
     Route: 048
     Dates: start: 20170609, end: 20170717

REACTIONS (6)
  - Decreased appetite [None]
  - Gastric haemorrhage [None]
  - Haemorrhagic anaemia [None]
  - Dyspnoea [None]
  - Anticoagulation drug level above therapeutic [None]
  - Chest pain [None]

NARRATIVE: CASE EVENT DATE: 20170717
